FAERS Safety Report 7291287-9 (Version None)
Quarter: 2011Q1

REPORT INFORMATION
  Report Type: 
  Country: None (occurrence: None)
  Receive Date: 20110214
  Receipt Date: 20110203
  Transmission Date: 20110831
  Serious: Yes (Other)
  Sender: FDA-Public Use
  Company Number: US-MYLANLABS-2010S1020740

PATIENT
  Age: 18 Year
  Sex: Female
  Weight: 62.6 kg

DRUGS (3)
  1. CLARAVIS [Suspect]
     Indication: ACNE
     Route: 048
     Dates: start: 20100720
  2. CONTRACEPTIVES NOS [Concomitant]
     Route: 048
  3. AMNESTEEM [Suspect]
     Indication: ACNE
     Route: 048
     Dates: end: 20100101

REACTIONS (1)
  - DRUG EXPOSURE DURING PREGNANCY [None]
